FAERS Safety Report 4667560-7 (Version None)
Quarter: 2005Q2

REPORT INFORMATION
  Report Type: 
  Country: None (occurrence: None)
  Receive Date: 20050520
  Receipt Date: 20041118
  Transmission Date: 20051028
  Serious: Yes (Other)
  Sender: FDA-Public Use
  Company Number: PHEH2004US12572

PATIENT
  Age: 57 Year
  Sex: Female

DRUGS (8)
  1. ZOMETA [Suspect]
     Indication: METASTASES TO BONE
     Dates: start: 20010101, end: 20041001
  2. ANASTROZOLE [Concomitant]
  3. TAM [Concomitant]
  4. PLAVIX [Concomitant]
  5. TOPROL-XL [Concomitant]
  6. CENTRUM [Concomitant]
  7. CALTRATE [Concomitant]
  8. METROGEL [Concomitant]
     Dosage: UNK, PRN

REACTIONS (3)
  - IMPAIRED HEALING [None]
  - ORAL SOFT TISSUE DISORDER [None]
  - OSTEONECROSIS [None]
